FAERS Safety Report 8531978-2 (Version None)
Quarter: 2012Q3

REPORT INFORMATION
  Report Type: 
  Country: None (occurrence: None)
  Receive Date: 20120723
  Receipt Date: 20120711
  Transmission Date: 20120928
  Serious: Yes (Other)
  Sender: FDA-Public Use
  Company Number: JP-PFIZER INC-2012175904

PATIENT
  Age: 92 Year
  Sex: Female

DRUGS (7)
  1. FLOMAX [Concomitant]
     Dosage: UNK
     Route: 048
     Dates: start: 20120501
  2. MUCOSTA [Concomitant]
     Dosage: UNK
     Dates: start: 20120409
  3. CELEBREX [Suspect]
     Dosage: 200 MG/DAY
     Route: 048
     Dates: start: 20120409, end: 20120508
  4. MEILAX [Concomitant]
     Dosage: UNK
     Route: 048
  5. WARFARIN [Concomitant]
     Dosage: UNK
     Route: 048
     Dates: start: 20120429
  6. CONIEL [Concomitant]
     Dosage: UNK
  7. ENTERONON R [Concomitant]
     Dosage: UNK

REACTIONS (1)
  - INTERNATIONAL NORMALISED RATIO INCREASED [None]
